FAERS Safety Report 8618533-0 (Version None)
Quarter: 2012Q3

REPORT INFORMATION
  Report Type: 
  Country: None (occurrence: None)
  Receive Date: 20120814
  Receipt Date: 20120814
  Transmission Date: 20120928
  Serious: Yes (Other)
  Sender: FDA-Public Use
  Company Number: None

PATIENT
  Age: 45 Year
  Sex: Female
  Weight: 72.5755 kg

DRUGS (1)
  1. METOPROLOL TARTRATE [Suspect]
     Indication: HYPERTENSION
     Dosage: 25 MG, TWICE A DAY, PO
     Dates: start: 20120726, end: 20120726

REACTIONS (4)
  - SENSATION OF HEAVINESS [None]
  - GAIT DISTURBANCE [None]
  - BLOOD PRESSURE INCREASED [None]
  - DYSPEPSIA [None]
